FAERS Safety Report 6894145-4 (Version None)
Quarter: 2010Q3

REPORT INFORMATION
  Report Type: 
  Country: None (occurrence: None)
  Receive Date: 20100802
  Receipt Date: 20100719
  Transmission Date: 20110219
  Serious: Yes (Life-Threatening, Hospitalization, Other)
  Sender: FDA-Public Use
  Company Number: GB-RANBAXY-2010RR-34809

PATIENT
  Age: 46 Year
  Sex: Female

DRUGS (28)
  1. SIMVASTATIN [Suspect]
     Dosage: 20 MG, QD
     Route: 048
  2. SIMVASTATIN [Suspect]
     Dosage: 40 MG, QD
     Route: 048
  3. FUCIDINE CAP [Suspect]
     Indication: ARTHRITIS BACTERIAL
     Dosage: 500 MG, TID
     Route: 065
  4. ALFACALCIDOL [Concomitant]
     Dosage: 1 UG, UNK
     Route: 065
  5. ALFACALCIDOL [Concomitant]
     Dosage: 5 MG, UNK
  6. ALUMINUM HYDROXIDE GEL [Concomitant]
     Dosage: 475 MG, TID
  7. ACETYLSALICYCILIC ACID [Concomitant]
     Dosage: 75 MG, UNK
     Route: 065
  8. ACETYLSALICYCILIC ACID [Concomitant]
     Dosage: 200 MG, UNK
  9. CALCIUM ACETATE [Concomitant]
     Dosage: 2 G, TID
     Route: 065
  10. CALCIUM ACETATE [Concomitant]
     Dosage: 4000 IU, UNK
  11. CLONAZEPAM [Concomitant]
     Dosage: 50 MG, QD
     Route: 065
  12. DILTIAZEM HYDROCHLORIDE [Concomitant]
     Dosage: 20 MG, BID
     Route: 065
  13. DILTIAZEM HYDROCHLORIDE [Concomitant]
     Dosage: 475 MG, TID
  14. EPOETIN NOS [Concomitant]
     Dosage: 4000 DF, UNK
     Route: 065
  15. FLOXACILLIN SODIUM [Concomitant]
     Indication: ARTHRITIS BACTERIAL
     Dosage: 500 MG, QID
     Route: 065
  16. FOLIC ACID [Concomitant]
     Dosage: 5 MG, UNK
     Route: 065
  17. GENTAMICIN [Concomitant]
     Indication: ARTHRITIS BACTERIAL
     Dosage: 75 MG, UNK
     Route: 065
  18. IRON SUCROSE [Concomitant]
     Dosage: 100 MG, 1/WEEK
     Route: 065
  19. IRON SUCROSE [Concomitant]
     Dosage: 1 UG, UNK
  20. MIXTARD HUMAN 70/30 [Concomitant]
     Indication: DIABETES MELLITUS
     Dosage: UNK
     Route: 065
  21. NICORANDIL [Concomitant]
     Dosage: 20 MG, BID
     Route: 065
  22. NICORANDIL [Concomitant]
     Dosage: 100 MG, 1/WEEK
  23. OROVITE [Concomitant]
     Dosage: 1 DF, UNK
     Route: 065
  24. PENICILLIN V [Concomitant]
     Indication: ARTHRITIS BACTERIAL
     Dosage: 250 MG, QID
     Route: 065
  25. SERTRALINE HYDROCHLORIDE [Concomitant]
     Dosage: 2 G, TID
     Route: 065
  26. WARFARIN SODIUM [Concomitant]
     Dosage: 1 MG, UNK
     Route: 065
  27. ALU-CAP [Concomitant]
     Route: 065
  28. EPOGEN [Concomitant]
     Dosage: 1 DF, UNK

REACTIONS (6)
  - BLOOD CREATINE PHOSPHOKINASE INCREASED [None]
  - DRUG INTERACTION [None]
  - HYPOTONIA [None]
  - MUSCULAR WEAKNESS [None]
  - PARAPARESIS [None]
  - RHABDOMYOLYSIS [None]
